FAERS Safety Report 8629539 (Version 3)
Quarter: 2013Q4

REPORT INFORMATION
  Report Type: Spontaneous
  Country: US (occurrence: US)
  Receive Date: 20120622
  Receipt Date: 20131010
  Transmission Date: 20140711
  Serious: Yes (Disabling, Other)
  Sender: FDA-Public Use
  Company Number: US-ASTRAZENECA-2012SE36348

PATIENT
  Age: 47 Year
  Sex: Female

DRUGS (21)
  1. NEXIUM [Suspect]
     Indication: DYSPEPSIA
     Route: 048
     Dates: start: 20070215
  2. NEXIUM [Suspect]
     Indication: DYSPEPSIA
     Dosage: ONE PILL A DAY
     Route: 048
  3. TRICOR [Concomitant]
     Dates: start: 20070129
  4. SINGULAIR [Concomitant]
     Dates: start: 20070129
  5. CELEBREX [Concomitant]
     Dates: start: 20070129
  6. DIOVAN HCT [Concomitant]
     Dosage: 80 TO 12.5
     Dates: start: 20070130
  7. LEVAQUIN [Concomitant]
     Dates: start: 20070202
  8. NICOTINE [Concomitant]
     Dates: start: 20070202
  9. FEXOFENADINE [Concomitant]
     Dates: start: 20070207
  10. FOLIC ACID [Concomitant]
     Dates: start: 20070209
  11. HALOPERIDOL [Concomitant]
     Dates: start: 20070209
  12. TRAZADONE [Concomitant]
     Dates: start: 20070213
  13. NASONEX [Concomitant]
     Dates: start: 20070213
  14. AMBIEN [Concomitant]
     Dates: start: 20070221
  15. ALBUTEROL [Concomitant]
     Dates: start: 20070302
  16. BENZTROPINE [Concomitant]
     Dates: start: 20070318
  17. SEROQUEL [Concomitant]
     Dates: start: 20070410
  18. ZOLPIDEM [Concomitant]
     Dates: start: 20070521
  19. OXYCODONE [Concomitant]
  20. VITAMIN B [Concomitant]
  21. ACCOLATE [Concomitant]

REACTIONS (17)
  - Hearing impaired [Unknown]
  - Cerebrovascular accident [Unknown]
  - Spinal cord injury [Unknown]
  - Osteoporosis [Unknown]
  - Spinal fracture [Unknown]
  - Bone density decreased [Unknown]
  - Ankle fracture [Unknown]
  - Arthritis [Unknown]
  - Bone disorder [Unknown]
  - Crohn^s disease [Unknown]
  - Diabetes mellitus [Unknown]
  - Rheumatoid arthritis [Unknown]
  - Vitamin D deficiency [Unknown]
  - Muscle atrophy [Unknown]
  - Joint injury [Unknown]
  - Limb injury [Unknown]
  - Depression [Unknown]
